FAERS Safety Report 10149131 (Version 1)
Quarter: 2014Q2

REPORT INFORMATION
  Report Type: Spontaneous
  Country: FR (occurrence: FR)
  Receive Date: 20140502
  Receipt Date: 20140502
  Transmission Date: 20141212
  Serious: Yes (Hospitalization)
  Sender: FDA-Public Use
  Company Number: FR-ROCHE-1392416

PATIENT
  Age: 79 Year
  Sex: Female

DRUGS (2)
  1. APRANAX [Suspect]
     Indication: OSTEOARTHRITIS
     Route: 048
     Dates: start: 20140402, end: 20140404
  2. LAMALINE [Suspect]
     Indication: OSTEOARTHRITIS
     Route: 048
     Dates: start: 20140402, end: 20140404

REACTIONS (1)
  - Confusional state [Recovered/Resolved]
